FAERS Safety Report 11399784 (Version 1)
Quarter: 2015Q3

REPORT INFORMATION
  Report Type: Report from Study
  Country: US (occurrence: US)
  Receive Date: 20150820
  Receipt Date: 20150820
  Transmission Date: 20151125
  Serious: Yes (Other)
  Sender: FDA-Public Use
  Company Number: US-AMGEN-USASL2015084567

PATIENT
  Age: 50 Year
  Sex: Male

DRUGS (1)
  1. ENBREL [Suspect]
     Active Substance: ETANERCEPT
     Indication: ANKYLOSING SPONDYLITIS
     Dosage: UNK UNK, UNK
     Route: 065
     Dates: start: 2015, end: 2015

REACTIONS (4)
  - Sinusitis [Unknown]
  - Pneumonia [Unknown]
  - Gingival bleeding [Unknown]
  - Gingival ulceration [Unknown]

NARRATIVE: CASE EVENT DATE: 2015
